FAERS Safety Report 5762156-8 (Version None)
Quarter: 2008Q2

REPORT INFORMATION
  Report Type: 
  Country: None (occurrence: None)
  Receive Date: 20080604
  Receipt Date: 20080529
  Transmission Date: 20081010
  Serious: Yes (Hospitalization)
  Sender: FDA-Public Use
  Company Number: 2008SP010264

PATIENT
  Sex: Female
  Weight: 63.9 kg

DRUGS (5)
  1. TEMODAL [Suspect]
     Indication: GLIOBLASTOMA MULTIFORME
     Dosage: 120 MG; QD; PO
     Route: 048
     Dates: start: 20080417, end: 20080527
  2. DEXAMETHASONE TAB [Concomitant]
  3. DILANTIN [Concomitant]
  4. MANNITOL [Concomitant]
  5. KYTRIL [Concomitant]

REACTIONS (10)
  - BRAIN OEDEMA [None]
  - CONFUSIONAL STATE [None]
  - DYSARTHRIA [None]
  - GENERAL PHYSICAL HEALTH DETERIORATION [None]
  - HEADACHE [None]
  - NAUSEA [None]
  - NO THERAPEUTIC RESPONSE [None]
  - PERIORBITAL OEDEMA [None]
  - SPEECH DISORDER [None]
  - VOMITING [None]
